FAERS Safety Report 4993919-4 (Version None)
Quarter: 2006Q2

REPORT INFORMATION
  Report Type: 
  Country: None (occurrence: None)
  Receive Date: 20060503
  Receipt Date: 20060426
  Transmission Date: 20061013
  Serious: Yes (Death, Hospitalization)
  Sender: FDA-Public Use
  Company Number: 2005BI005295

PATIENT
  Age: 41 Year
  Sex: Male

DRUGS (4)
  1. AVONEX [Suspect]
     Indication: RELAPSING-REMITTING MULTIPLE SCLEROSIS
     Dosage: 30 UG;QW;IM
     Route: 030
     Dates: start: 20041201, end: 20050217
  2. RISPERDAL [Concomitant]
  3. ZYPREXA [Concomitant]
  4. AKINETON [Concomitant]

REACTIONS (3)
  - CONDITION AGGRAVATED [None]
  - PYRAMIDAL TRACT SYNDROME [None]
  - SCHIZOPHRENIA, DISORGANISED TYPE [None]
